FAERS Safety Report 7191495-1 (Version None)
Quarter: 2010Q4

REPORT INFORMATION
  Report Type: 
  Country: None (occurrence: None)
  Receive Date: 20101223
  Receipt Date: 20100816
  Transmission Date: 20110411
  Serious: No
  Sender: FDA-Public Use
  Company Number: US-AMGEN-TCS431811

PATIENT

DRUGS (4)
  1. ENBREL [Suspect]
     Indication: PSORIASIS
     Dosage: 50 MG, QWK
     Route: 058
     Dates: start: 20040601
  2. ENBREL [Suspect]
     Indication: PSORIATIC ARTHROPATHY
  3. METHOTREXATE [Concomitant]
     Dosage: UNK UNK, UNK
  4. UNSPECIFIED THYROID MEDICATION [Concomitant]

REACTIONS (5)
  - FATIGUE [None]
  - NECK PAIN [None]
  - PSORIASIS [None]
  - PSORIATIC ARTHROPATHY [None]
  - WEIGHT INCREASED [None]
